FAERS Safety Report 5069972-9 (Version None)
Quarter: 2006Q3

REPORT INFORMATION
  Report Type: 
  Country: None (occurrence: None)
  Receive Date: 20060731
  Receipt Date: 20060712
  Transmission Date: 20061208
  Serious: Yes (Hospitalization)
  Sender: FDA-Public Use
  Company Number: 111667ISR

PATIENT
  Age: 52 Year
  Sex: Female

DRUGS (4)
  1. CARBOPLATIN [Suspect]
  2. DOCETAXEL [Suspect]
  3. MELPHALAN [Suspect]
  4. HERCEPTIN [Suspect]

REACTIONS (3)
  - COLITIS [None]
  - HYPERAMMONAEMIA [None]
  - MULTI-ORGAN FAILURE [None]
